FAERS Safety Report 11120004 (Version 1)
Quarter: 2015Q2

REPORT INFORMATION
  Report Type: Report from Study
  Country: TR (occurrence: TR)
  Receive Date: 20150518
  Receipt Date: 20150518
  Transmission Date: 20150821
  Serious: Yes (Other)
  Sender: FDA-Public Use
  Company Number: PHHY2015TR056829

PATIENT
  Sex: Male
  Weight: 37 kg

DRUGS (1)
  1. SOMATROPIN [Suspect]
     Active Substance: SOMATROPIN
     Indication: GROWTH HORMONE DEFICIENCY
     Dosage: (1.3 MG/DAY FOR 04 DAYS AND 1.2 MG/DAY FOR FOLLOWING 4 DAYS)
     Route: 058
     Dates: start: 20141229, end: 20150420

REACTIONS (1)
  - Osteomalacia [Not Recovered/Not Resolved]
